FAERS Safety Report 6653830-X (Version None)
Quarter: 2010Q1

REPORT INFORMATION
  Report Type: 
  Country: None (occurrence: None)
  Receive Date: 20100326
  Receipt Date: 20100316
  Transmission Date: 20100710
  Serious: Yes (Other)
  Sender: FDA-Public Use
  Company Number: B0638848A

PATIENT
  Sex: Female
  Weight: 40 kg

DRUGS (3)
  1. LAPATINIB [Suspect]
     Indication: GASTRIC CANCER
     Dosage: 1250MG PER DAY
     Route: 048
     Dates: start: 20100203, end: 20100223
  2. CAPECITABINE [Suspect]
     Indication: GASTRIC CANCER
     Dosage: 1700MGM2 TWICE PER DAY
     Route: 048
     Dates: start: 20100203, end: 20100217
  3. OXALIPLATIN [Suspect]
     Indication: GASTRIC CANCER
     Dosage: 130MGM2 CYCLIC
     Route: 042
     Dates: start: 20100203, end: 20100203

REACTIONS (1)
  - NEUTROPENIA [None]
